FAERS Safety Report 10899683 (Version 3)
Quarter: 2015Q2

REPORT INFORMATION
  Report Type: Spontaneous
  Country: CO (occurrence: CO)
  Receive Date: 20150309
  Receipt Date: 20150403
  Transmission Date: 20150821
  Serious: Yes (Hospitalization)
  Sender: FDA-Public Use
  Company Number: CO-BIOMARINAP-CO-2015-105710

PATIENT
  Sex: Female
  Weight: 13 kg

DRUGS (1)
  1. VIMIZIM [Suspect]
     Active Substance: ELOSULFASE ALFA
     Indication: MUCOPOLYSACCHARIDOSIS IV
     Dosage: 30 MG, QW
     Route: 042
     Dates: start: 20141021

REACTIONS (3)
  - Cervical myelopathy [Recovered/Resolved]
  - Spinal cord compression [Recovered/Resolved]
  - Atlantoaxial instability [Recovered/Resolved]
